FAERS Safety Report 7524874-0 (Version None)
Quarter: 2011Q2

REPORT INFORMATION
  Report Type: 
  Country: None (occurrence: None)
  Receive Date: 20110606
  Receipt Date: 20110523
  Transmission Date: 20111010
  Serious: Yes (Hospitalization)
  Sender: FDA-Public Use
  Company Number: US-ELI_LILLY_AND_COMPANY-US201105007334

PATIENT
  Sex: Female

DRUGS (7)
  1. PLAVIX [Concomitant]
  2. RAMIPRIL [Concomitant]
  3. PRAVASTATIN [Concomitant]
  4. MORPHINE [Concomitant]
  5. FORTEO [Suspect]
     Indication: OSTEOPOROSIS
     Dosage: 20 UG, QD
     Dates: start: 20110317, end: 20110401
  6. ASPIRIN [Concomitant]
  7. METOPROLOL TARTRATE [Concomitant]

REACTIONS (4)
  - STENT PLACEMENT [None]
  - ARTERIAL HAEMORRHAGE [None]
  - CHEST PAIN [None]
  - ARTERIAL INJURY [None]
